FAERS Safety Report 12925498 (Version 2)
Quarter: 2017Q1

REPORT INFORMATION
  Report Type: Spontaneous
  Country: US (occurrence: US)
  Receive Date: 20161108
  Receipt Date: 20170227
  Transmission Date: 20170428
  Serious: Yes (Hospitalization)
  Sender: FDA-Public Use
  Company Number: US-SA-2016SA159206

PATIENT
  Age: 73 Year
  Sex: Female

DRUGS (7)
  1. PRALUENT [Suspect]
     Active Substance: ALIROCUMAB
     Indication: BLOOD CHOLESTEROL
     Route: 065
     Dates: start: 20160728
  2. PRALUENT [Suspect]
     Active Substance: ALIROCUMAB
     Indication: BLOOD CHOLESTEROL
     Route: 065
  3. PRALUENT [Suspect]
     Active Substance: ALIROCUMAB
     Indication: BLOOD CHOLESTEROL
     Route: 065
     Dates: start: 2016
  4. ALIROCUMAB PREFILLED PEN [Concomitant]
     Active Substance: ALIROCUMAB
     Indication: BLOOD CHOLESTEROL
     Route: 065
     Dates: start: 20160728
  5. LEXAPRO [Suspect]
     Active Substance: ESCITALOPRAM OXALATE
     Route: 065
  6. ALIROCUMAB PREFILLED PEN [Concomitant]
     Active Substance: ALIROCUMAB
     Indication: BLOOD CHOLESTEROL
     Route: 065
  7. ALIROCUMAB PREFILLED PEN [Concomitant]
     Active Substance: ALIROCUMAB
     Indication: BLOOD CHOLESTEROL
     Route: 065
     Dates: start: 2016

REACTIONS (6)
  - Chronic obstructive pulmonary disease [Unknown]
  - Renal disorder [Unknown]
  - Panic attack [Not Recovered/Not Resolved]
  - Drug dose omission [Unknown]
  - Cardiac failure [Unknown]
  - Tremor [Unknown]

NARRATIVE: CASE EVENT DATE: 20160729
